FAERS Safety Report 23138617 (Version 1)
Quarter: 2023Q4

REPORT INFORMATION
  Report Type: Spontaneous
  Country: US (occurrence: US)
  Receive Date: 20231102
  Receipt Date: 20231102
  Transmission Date: 20240109
  Serious: No
  Sender: FDA-Public Use
  Company Number: US-Merck Healthcare KGaA-2023484750

PATIENT
  Sex: Female

DRUGS (3)
  1. MAVENCLAD [Suspect]
     Active Substance: CLADRIBINE
     Indication: Multiple sclerosis
     Dosage: YEAR ONE MONTH ONE THERAPY
     Route: 048
     Dates: start: 20220926, end: 20220930
  2. MAVENCLAD [Suspect]
     Active Substance: CLADRIBINE
     Dosage: YEAR ONE MONTH TWO THERAPY
     Route: 048
     Dates: end: 20221028
  3. MAVENCLAD [Suspect]
     Active Substance: CLADRIBINE
     Dosage: YEAR TWO MONTH ONE THERAPY: PRESCRIBED AS TWO TABLETS ON DAYS 1 TO 4 AND ONE TABLET ON DAY 5
     Route: 048
     Dates: start: 20231024

REACTIONS (3)
  - Fatigue [Unknown]
  - Headache [Unknown]
  - Nausea [Unknown]
